FAERS Safety Report 6972381-6 (Version None)
Quarter: 2010Q3

REPORT INFORMATION
  Report Type: 
  Country: None (occurrence: None)
  Receive Date: 20100909
  Receipt Date: 20100831
  Transmission Date: 20110219
  Serious: Yes (Hospitalization, Other)
  Sender: FDA-Public Use
  Company Number: JP-B.I. PHARMACEUTICALS,INC./RIDGEFIELD-2010-BP-08520NB

PATIENT
  Sex: Female
  Weight: 58 kg

DRUGS (6)
  1. MICARDIS [Suspect]
     Indication: HYPERTENSION
     Dosage: 40 MG
     Route: 048
     Dates: start: 20031020, end: 20100618
  2. CELECOX [Suspect]
     Indication: OEDEMA PERIPHERAL
     Dosage: 200 MG
     Route: 048
     Dates: start: 20100617, end: 20100618
  3. BESASTAR SR [Concomitant]
     Indication: HYPERLIPIDAEMIA
     Dosage: 200 MG
     Route: 048
     Dates: start: 20020528, end: 20100618
  4. GLAKAY [Concomitant]
     Indication: OSTEOPOROSIS
     Dosage: 30 MG
     Route: 048
     Dates: start: 20090303, end: 20100618
  5. PLATIBIT [Concomitant]
     Indication: OSTEOPOROSIS
     Dosage: 1 MCG
     Route: 048
     Dates: start: 20080110, end: 20100618
  6. TEPRENONE [Concomitant]
     Indication: PROPHYLAXIS
     Dosage: 100 MG
     Route: 048
     Dates: start: 20090617, end: 20100618

REACTIONS (5)
  - ANAPHYLACTOID REACTION [None]
  - JOINT SWELLING [None]
  - LUMBAR VERTEBRAL FRACTURE [None]
  - OSTEOPOROSIS [None]
  - SKIN LACERATION [None]
